FAERS Safety Report 6677927-3 (Version None)
Quarter: 2010Q2

REPORT INFORMATION
  Report Type: 
  Country: None (occurrence: None)
  Receive Date: 20100412
  Receipt Date: 20100408
  Transmission Date: 20101027
  Serious: Yes (Hospitalization)
  Sender: FDA-Public Use
  Company Number: JP-B.I. PHARMACEUTICALS,INC./RIDGEFIELD-2010-BP-03986NB

PATIENT
  Sex: Female
  Weight: 57.5 kg

DRUGS (9)
  1. MICARDIS [Suspect]
     Indication: HYPERTENSION
     Dosage: 40 MG
     Route: 048
     Dates: start: 20060424
  2. CALBLOCK [Concomitant]
     Indication: HYPERTENSION
     Dosage: 16 MG
     Route: 048
  3. FLUITRAN [Concomitant]
     Indication: HYPERTENSION
     Dosage: 1 G
     Route: 048
  4. ASPIRIN [Concomitant]
     Indication: PROPHYLAXIS
     Dosage: 100 MG
     Route: 048
  5. ANPLAG [Concomitant]
     Dosage: 300 MG
     Route: 048
  6. BASEN [Concomitant]
     Dosage: 0.6 MG
     Route: 048
  7. NOVORAPID MIX [Concomitant]
     Dosage: 18 U
     Route: 023
  8. MEVALOTIN [Concomitant]
     Dosage: 10 MG
     Route: 048
  9. WARFARIN [Concomitant]
     Indication: PROPHYLAXIS
     Dosage: 1 MG
     Route: 048

REACTIONS (1)
  - CEREBRAL INFARCTION [None]
